FAERS Safety Report 24166807 (Version 1)
Quarter: 2024Q3

REPORT INFORMATION
  Report Type: Spontaneous
  Country: US (occurrence: None)
  Receive Date: 20240801
  Receipt Date: 20240801
  Transmission Date: 20241017
  Serious: Yes (Other)
  Sender: Public
  Company Number: None

PATIENT
  Age: 76 Year
  Sex: Male
  Weight: 76.2 kg

DRUGS (1)
  1. OZEMPIC [Suspect]
     Active Substance: SEMAGLUTIDE
     Indication: Diabetes mellitus
     Dosage: OTHER QUANTITY : INJECTION ONCE A WEEK;?FREQUENCY : WEEKLY;?
     Dates: start: 202404

REACTIONS (2)
  - Feeling hot [None]
  - Flushing [None]

NARRATIVE: CASE EVENT DATE: 20240520
